FAERS Safety Report 10629559 (Version 2)
Quarter: 2014Q4

REPORT INFORMATION
  Report Type: Spontaneous
  Country: US (occurrence: US)
  Receive Date: 20141205
  Receipt Date: 20141205
  Transmission Date: 20150529
  Serious: No
  Sender: FDA-Public Use
  Company Number: US-BRISTOL-MYERS SQUIBB COMPANY-20593695

PATIENT
  Age: 80 Year
  Sex: Female
  Weight: 68.03 kg

DRUGS (11)
  1. LIPITOR [Concomitant]
     Active Substance: ATORVASTATIN CALCIUM
  2. GABAPENTIN. [Concomitant]
     Active Substance: GABAPENTIN
  3. BARACLUDE [Suspect]
     Active Substance: ENTECAVIR
     Indication: ENCEPHALOPATHY
     Dosage: ONGOING
     Route: 048
     Dates: start: 2006
  4. LACTULOSE. [Concomitant]
     Active Substance: LACTULOSE
     Dosage: 1 DF : 10 MG/15 ML
  5. PRILOSEC [Concomitant]
     Active Substance: OMEPRAZOLE MAGNESIUM
  6. AMLODIPINE BESYLATE. [Concomitant]
     Active Substance: AMLODIPINE BESYLATE
  7. TEGRETOL [Concomitant]
     Active Substance: CARBAMAZEPINE
  8. BARACLUDE [Suspect]
     Active Substance: ENTECAVIR
     Indication: HEPATITIS B
     Dosage: ONGOING
     Route: 048
     Dates: start: 2006
  9. CARVEDILOL. [Concomitant]
     Active Substance: CARVEDILOL
  10. METFORMIN [Concomitant]
     Active Substance: METFORMIN HYDROCHLORIDE
  11. TRAZODONE HYDROCHLORIDE. [Concomitant]
     Active Substance: TRAZODONE HYDROCHLORIDE

REACTIONS (2)
  - Headache [Recovered/Resolved]
  - Drug dose omission [Unknown]
